FAERS Safety Report 9566200 (Version 1)
Quarter: 2013Q3

REPORT INFORMATION
  Report Type: Spontaneous
  Country: US (occurrence: US)
  Receive Date: 20130930
  Receipt Date: 20130930
  Transmission Date: 20140515
  Serious: No
  Sender: FDA-Public Use
  Company Number: US-ASTRAZENECA-2013SE64542

PATIENT
  Age: 73 Year
  Sex: Male

DRUGS (3)
  1. BRILINTA [Suspect]
     Indication: ACUTE CORONARY SYNDROME
     Route: 048
     Dates: start: 20130819, end: 20130819
  2. CARDINE [Concomitant]
     Dates: start: 20130819
  3. NITRO [Concomitant]
     Dates: start: 20130819

REACTIONS (3)
  - Oral discomfort [Recovered/Resolved]
  - Stress [Recovered/Resolved]
  - Feeling abnormal [Recovered/Resolved]
